FAERS Safety Report 9085077 (Version 1)
Quarter: 2013Q1

REPORT INFORMATION
  Report Type: Spontaneous
  Country: PR (occurrence: PR)
  Receive Date: 20130130
  Receipt Date: 20130130
  Transmission Date: 20140127
  Serious: No
  Sender: FDA-Public Use
  Company Number: PR-ABBOTT-12P-131-0988738-00

PATIENT
  Sex: Male
  Weight: 85.81 kg

DRUGS (6)
  1. HUMIRA [Suspect]
     Indication: RHEUMATOID ARTHRITIS
     Route: 058
  2. METOPROLOL [Concomitant]
     Indication: HYPERTENSION
     Dosage: 50 MG DAILY
     Route: 048
  3. METFORMIN [Concomitant]
     Indication: DIABETES MELLITUS
     Route: 048
     Dates: start: 2005
  4. TRADJENTA [Concomitant]
     Indication: DIABETES MELLITUS
     Dosage: 5 MG DAILY
     Route: 048
  5. ZOCOR [Concomitant]
     Indication: HYPERCHOLESTEROLAEMIA
     Dosage: 40 MG DAILY
     Route: 048
     Dates: start: 2000
  6. ASPIRIN [Concomitant]
     Indication: PRODUCT USED FOR UNKNOWN INDICATION
     Dosage: 325 MG DAILY
     Route: 048

REACTIONS (4)
  - Limb injury [Recovering/Resolving]
  - Limb injury [Recovering/Resolving]
  - Burns second degree [Recovering/Resolving]
  - Burns second degree [Recovering/Resolving]
